FAERS Safety Report 25565619 (Version 3)
Quarter: 2025Q4

REPORT INFORMATION
  Report Type: Report from Study
  Country: EU (occurrence: EU)
  Receive Date: 20250716
  Receipt Date: 20251010
  Transmission Date: 20260118
  Serious: Yes (Death, Hospitalization, Other)
  Sender: ABBVIE
  Company Number: EU-ABBVIE-6371219

PATIENT
  Age: 61 Year
  Sex: Male

DRUGS (2)
  1. RINVOQ [Suspect]
     Active Substance: UPADACITINIB
     Indication: Product used for unknown indication
     Route: 048
     Dates: start: 202003, end: 202501
  2. METHOTREXATE [Concomitant]
     Active Substance: METHOTREXATE
     Indication: Product used for unknown indication
     Route: 065

REACTIONS (11)
  - Intervertebral discitis [Fatal]
  - Prostate cancer [Unknown]
  - Atrial fibrillation [Recovered/Resolved]
  - Pancytopenia [Recovered/Resolved]
  - Staphylococcal sepsis [Fatal]
  - Neutropenia [Recovered/Resolved]
  - Multiple organ dysfunction syndrome [Fatal]
  - Diverticulitis [Recovered/Resolved]
  - Acute kidney injury [Recovered/Resolved]
  - Escherichia sepsis [Recovered/Resolved]
  - Osteoporosis [Recovered/Resolved]

NARRATIVE: CASE EVENT DATE: 20240701
